FAERS Safety Report 13910856 (Version 5)
Quarter: 2018Q1

REPORT INFORMATION
  Report Type: Spontaneous
  Country: FI (occurrence: FI)
  Receive Date: 20170828
  Receipt Date: 20180202
  Transmission Date: 20180508
  Serious: Yes (Other)
  Sender: FDA-Public Use
  Company Number: PHHY2017FI123094

PATIENT
  Age: 22 Year
  Sex: Female
  Weight: 62 kg

DRUGS (4)
  1. ORTHO EVRA [Interacting]
     Active Substance: ETHINYL ESTRADIOL\NORELGESTROMIN
     Indication: CONTRACEPTION
     Route: 062
     Dates: start: 2012
  2. KEPPRA [Concomitant]
     Active Substance: LEVETIRACETAM
     Indication: EPILEPSY
     Dosage: 2500 MG, QD
     Route: 048
  3. TRILEPTAL [Suspect]
     Active Substance: OXCARBAZEPINE
     Indication: EPILEPSY
     Dosage: 900 MG, QD
     Route: 048
     Dates: start: 2015
  4. KEPPRA [Concomitant]
     Active Substance: LEVETIRACETAM
     Dosage: 1700 MG, (1500 MG + 200 MG)
     Route: 048

REACTIONS (5)
  - Drug interaction [Recovered/Resolved with Sequelae]
  - Maternal exposure during breast feeding [Unknown]
  - Normal newborn [Unknown]
  - Unintended pregnancy [Recovered/Resolved with Sequelae]
  - Exposure during pregnancy [Recovered/Resolved with Sequelae]

NARRATIVE: CASE EVENT DATE: 20161227
